FAERS Safety Report 9917933 (Version 2)
Quarter: 2014Q1

REPORT INFORMATION
  Report Type: Report from Study
  Country: GB (occurrence: GB)
  Receive Date: 20140222
  Receipt Date: 20140311
  Transmission Date: 20141002
  Serious: Yes (Other)
  Sender: FDA-Public Use
  Company Number: GB-ROCHE-1351179

PATIENT
  Age: 66 Year
  Sex: Female
  Weight: 66.2 kg

DRUGS (3)
  1. BEVACIZUMAB [Suspect]
     Indication: COLON CANCER
     Route: 042
     Dates: start: 20131106
  2. DALTEPARIN [Concomitant]
     Indication: THROMBOSIS
     Dosage: 12500 UNITS
     Route: 065
     Dates: start: 20140210
  3. DEXAMETHASONE [Concomitant]
     Route: 048
     Dates: start: 20140212, end: 20140219

REACTIONS (1)
  - Superior vena cava occlusion [Recovered/Resolved]
